FAERS Safety Report 7238884-4 (Version None)
Quarter: 2011Q1

REPORT INFORMATION
  Report Type: 
  Country: None (occurrence: None)
  Receive Date: 20110119
  Receipt Date: 20110119
  Transmission Date: 20110831
  Serious: Yes (Life-Threatening, Hospitalization, Disabling)
  Sender: FDA-Public Use
  Company Number: None

PATIENT
  Age: 71 Year
  Sex: Female
  Weight: 68 kg

DRUGS (4)
  1. BISOPROLOL FUMARATE [Concomitant]
  2. SIMVASTATIN [Concomitant]
  3. ASPICOT [Concomitant]
  4. DICLOFENAC SODIUM [Suspect]
     Indication: ARTHRALGIA
     Dosage: 150 MG ONCE PO
     Route: 048
     Dates: start: 20110112, end: 20110112

REACTIONS (1)
  - ANAPHYLACTIC SHOCK [None]
